FAERS Safety Report 6517660-1 (Version None)
Quarter: 2009Q4

REPORT INFORMATION
  Report Type: 
  Country: None (occurrence: None)
  Receive Date: 20091224
  Receipt Date: 20091112
  Transmission Date: 20100525
  Serious: Yes (Hospitalization, Other)
  Sender: FDA-Public Use
  Company Number: AU-WYE-G05185409

PATIENT
  Sex: Female
  Weight: 80 kg

DRUGS (7)
  1. EFFEXOR XR [Suspect]
     Dosage: 150MG
  2. SEROQUEL [Interacting]
     Dosage: 900MG
  3. DI-GESIC [Concomitant]
     Dosage: 3 TIMES A DAY
  4. LIPITOR [Concomitant]
     Dosage: 40MG
  5. NEXIUM [Concomitant]
     Dosage: 40MG
  6. CHAMPIX [Interacting]
     Dosage: 1 DOSE UNSPECIFIED DAILY
     Dates: start: 20091006
  7. TRAMADOL HCL [Interacting]
     Dosage: 400MG DAILY
     Dates: start: 20091006

REACTIONS (7)
  - CONVULSION [None]
  - DIZZINESS [None]
  - DRUG INTERACTION [None]
  - MALAISE [None]
  - SOMNOLENCE [None]
  - TONGUE BITING [None]
  - URINARY INCONTINENCE [None]
